FAERS Safety Report 12920484 (Version 3)
Quarter: 2016Q4

REPORT INFORMATION
  Report Type: Report from Study
  Country: DE (occurrence: DE)
  Receive Date: 20161108
  Receipt Date: 20161220
  Transmission Date: 20170207
  Serious: Yes (Hospitalization, Other)
  Sender: FDA-Public Use
  Company Number: PHHY2016DE152176

PATIENT
  Sex: Male
  Weight: 88 kg

DRUGS (3)
  1. ALLOPURINOL. [Concomitant]
     Active Substance: ALLOPURINOL
     Indication: HYPERURICAEMIA
     Dosage: 150 MG, QD
     Route: 048
  2. PAZOPANIB [Suspect]
     Active Substance: PAZOPANIB
     Indication: METASTASES TO LIVER
  3. PAZOPANIB [Suspect]
     Active Substance: PAZOPANIB
     Indication: METASTATIC RENAL CELL CARCINOMA
     Dosage: 400 MG, QD
     Route: 065
     Dates: start: 20160520, end: 20160531

REACTIONS (9)
  - Dizziness [Unknown]
  - Ventricular arrhythmia [Recovered/Resolved]
  - Palpitations [Unknown]
  - Extrasystoles [Recovered/Resolved]
  - Nausea [Unknown]
  - Bradycardia [Unknown]
  - Electrocardiogram QT prolonged [Unknown]
  - Blood calcium decreased [Unknown]
  - Cold sweat [Unknown]

NARRATIVE: CASE EVENT DATE: 20160520
